FAERS Safety Report 6846627-9 (Version None)
Quarter: 2010Q3

REPORT INFORMATION
  Report Type: 
  Country: None (occurrence: None)
  Receive Date: 20100715
  Receipt Date: 20070919
  Transmission Date: 20110219
  Serious: No
  Sender: FDA-Public Use
  Company Number: US-PFIZER INC-2007078754

PATIENT
  Sex: Female
  Weight: 72.727 kg

DRUGS (3)
  1. CHANTIX [Suspect]
     Indication: SMOKING CESSATION THERAPY
     Dates: start: 20070801, end: 20070916
  2. DILTIAZEM [Concomitant]
  3. LOVASTATIN [Concomitant]

REACTIONS (4)
  - ABDOMINAL DISTENSION [None]
  - BREAST PAIN [None]
  - CONSTIPATION [None]
  - PRURITUS [None]
